FAERS Safety Report 12807311 (Version 1)
Quarter: 2016Q4

REPORT INFORMATION
  Report Type: Spontaneous
  Country: US (occurrence: US)
  Receive Date: 20161003
  Receipt Date: 20161003
  Transmission Date: 20170207
  Serious: No
  Sender: FDA-Public Use
  Company Number: None

PATIENT
  Age: 48 Year
  Sex: Female

DRUGS (1)
  1. SIMPONI [Suspect]
     Active Substance: GOLIMUMAB

REACTIONS (4)
  - Vomiting [None]
  - Fatigue [None]
  - Neuralgia [None]
  - Nausea [None]

NARRATIVE: CASE EVENT DATE: 20160901
